FAERS Safety Report 5819064-3 (Version None)
Quarter: 2008Q3

REPORT INFORMATION
  Report Type: 
  Country: None (occurrence: None)
  Receive Date: 20080723
  Receipt Date: 20070904
  Transmission Date: 20090109
  Serious: No
  Sender: FDA-Public Use
  Company Number: US-BAYER-US-2007-033067

PATIENT
  Age: 52 Year
  Sex: Female
  Weight: 57 kg

DRUGS (5)
  1. MAGNEVIST [Suspect]
     Indication: NUCLEAR MAGNETIC RESONANCE IMAGING BRAIN
     Dosage: TOTAL DAILY DOSE: 12 ML  UNIT DOSE: 15 ML
     Route: 042
     Dates: start: 20070831, end: 20070831
  2. AVAPRO [Concomitant]
  3. THEOPHYLLINE [Concomitant]
  4. ADVAIR DISKUS 100/50 [Concomitant]
  5. FISH OIL [Concomitant]

REACTIONS (4)
  - DIARRHOEA [None]
  - NAUSEA [None]
  - URTICARIA [None]
  - VOMITING [None]
